FAERS Safety Report 8397906-8 (Version None)
Quarter: 2012Q2

REPORT INFORMATION
  Report Type: 
  Country: None (occurrence: None)
  Receive Date: 20120531
  Receipt Date: 20120525
  Transmission Date: 20120825
  Serious: Yes (Other)
  Sender: FDA-Public Use
  Company Number: PHHY2012JP042028

PATIENT
  Age: 59 Year
  Sex: Male

DRUGS (9)
  1. MUCOSTA [Suspect]
     Indication: SCIATICA
     Route: 048
  2. SYAKUYAKUKANZOTO [Suspect]
     Indication: SCIATICA
     Route: 048
  3. TEGRETOL [Suspect]
     Indication: SCIATICA
     Route: 048
  4. VOLTAREN [Suspect]
     Indication: SCIATICA
     Route: 048
  5. RINLAXER [Suspect]
     Indication: SCIATICA
     Route: 048
  6. OPALMON [Suspect]
     Indication: SCIATICA
     Route: 048
  7. TOKISHIGYAKUKAGOSHUYUSHOKYOTO [Concomitant]
     Indication: SCIATICA
  8. VITAMIN B12 [Suspect]
     Indication: SCIATICA
     Route: 048
  9. NEUROTROPIN [Suspect]
     Indication: SCIATICA
     Route: 048

REACTIONS (14)
  - DRUG RASH WITH EOSINOPHILIA AND SYSTEMIC SYMPTOMS [None]
  - LIVER DISORDER [None]
  - PYREXIA [None]
  - EPIDERMAL NECROSIS [None]
  - LYMPHOCYTIC INFILTRATION [None]
  - LYMPHOCYTE STIMULATION TEST POSITIVE [None]
  - LYMPHADENOPATHY [None]
  - FACE OEDEMA [None]
  - EXTRAVASATION BLOOD [None]
  - WHITE BLOOD CELL COUNT INCREASED [None]
  - HUMAN HERPESVIRUS 6 INFECTION [None]
  - GENERALISED ERYTHEMA [None]
  - PAPULE [None]
  - OEDEMA [None]
